FAERS Safety Report 4808712-2 (Version None)
Quarter: 2005Q4

REPORT INFORMATION
  Report Type: 
  Country: None (occurrence: None)
  Receive Date: 20051021
  Receipt Date: 20021021
  Transmission Date: 20060501
  Serious: Yes (Other)
  Sender: FDA-Public Use
  Company Number: US_021089047

PATIENT
  Age: 74 Year
  Sex: Male

DRUGS (3)
  1. OLANZAPINE [Suspect]
     Indication: SCHIZOPHRENIA
     Dosage: 5 MG/2 DAY
  2. CHLORPROMAZINE [Concomitant]
  3. FLUANOXOL (FLUPENTIXOL DIHYDROCHLORIDE) [Concomitant]

REACTIONS (4)
  - COMA [None]
  - PLATELET COUNT ABNORMAL [None]
  - PSYCHOTIC DISORDER [None]
  - SOMNOLENCE [None]
